FAERS Safety Report 5063267-5 (Version None)
Quarter: 2006Q3

REPORT INFORMATION
  Report Type: 
  Country: None (occurrence: None)
  Receive Date: 20060703
  Receipt Date: 20060508
  Transmission Date: 20061208
  Serious: No
  Sender: FDA-Public Use
  Company Number: 2006PV013438

PATIENT
  Age: 60 Year
  Sex: Female
  Weight: 81.6475 kg

DRUGS (3)
  1. SYMLIN [Suspect]
     Indication: DIABETES MELLITUS INSULIN-DEPENDENT
     Dosage: 45 MCG; TID; SC; 15 MCG; TID; SC
     Route: 058
     Dates: start: 20060101, end: 20060101
  2. SYMLIN [Suspect]
     Indication: DIABETES MELLITUS INSULIN-DEPENDENT
     Dosage: 45 MCG; TID; SC; 15 MCG; TID; SC
     Route: 058
     Dates: start: 20060101
  3. HUMALOG INSULIN PUMP [Concomitant]

REACTIONS (1)
  - CONSTIPATION [None]
